FAERS Safety Report 7585591-4 (Version None)
Quarter: 2011Q2

REPORT INFORMATION
  Report Type: 
  Country: None (occurrence: None)
  Receive Date: 20110603
  Receipt Date: 20110203
  Transmission Date: 20111010
  Serious: No
  Sender: FDA-Public Use
  Company Number: 201012044

PATIENT
  Age: 72 Year
  Sex: Female

DRUGS (2)
  1. XIAFLEX [Suspect]
     Indication: DUPUYTREN'S CONTRACTURE
     Dosage: 1 IN 1 D, INTRALESIONAL
     Route: 026
     Dates: start: 20101011, end: 20101011
  2. ANDROGENS (ANDROGENS) [Concomitant]

REACTIONS (1)
  - HYPOAESTHESIA [None]
